FAERS Safety Report 25707721 (Version 2)
Quarter: 2025Q3

REPORT INFORMATION
  Report Type: Spontaneous
  Country: EU (occurrence: EU)
  Receive Date: 20250820
  Receipt Date: 20250904
  Transmission Date: 20251020
  Serious: Yes (Other)
  Sender: PFIZER
  Company Number: None

PATIENT
  Age: 61 Year
  Sex: Male
  Weight: 77 kg

DRUGS (2)
  1. AZITHROMYCIN [Suspect]
     Active Substance: AZITHROMYCIN
     Indication: Mycobacterium chelonae infection
     Dosage: 500 MG, 1X/DAY
     Route: 048
     Dates: start: 20250724, end: 20250804
  2. CIPROFLOXACIN [Concomitant]
     Active Substance: CIPROFLOXACIN
     Indication: Mycobacterium chelonae infection
     Dosage: 1500 MG, 1X/DAY
     Route: 048
     Dates: start: 20250724

REACTIONS (2)
  - Deafness neurosensory [Recovering/Resolving]
  - Tinnitus [Recovered/Resolved]

NARRATIVE: CASE EVENT DATE: 20250725
